FAERS Safety Report 4770868-8 (Version None)
Quarter: 2005Q3

REPORT INFORMATION
  Report Type: 
  Country: None (occurrence: None)
  Receive Date: 20050914
  Receipt Date: 20050905
  Transmission Date: 20060218
  Serious: Yes (Hospitalization, Other)
  Sender: FDA-Public Use
  Company Number: 2005124248

PATIENT
  Age: 45 Year
  Sex: Female

DRUGS (1)
  1. ZYVOX [Suspect]
     Indication: ILL-DEFINED DISORDER

REACTIONS (1)
  - CONVULSION [None]
